FAERS Safety Report 5254291-8 (Version None)
Quarter: 2007Q1

REPORT INFORMATION
  Report Type: 
  Country: None (occurrence: None)
  Receive Date: 20070302
  Receipt Date: 20070301
  Transmission Date: 20070707
  Serious: Yes (Death, Hospitalization)
  Sender: FDA-Public Use
  Company Number: JP-GLAXOSMITHKLINE-B0460274A

PATIENT
  Age: 100 Year
  Sex: Female
  Weight: 30 kg

DRUGS (1)
  1. VALTREX [Suspect]
     Indication: HERPES ZOSTER
     Dosage: 1000MG THREE TIMES PER DAY
     Route: 048
     Dates: start: 20060303, end: 20060304

REACTIONS (9)
  - DECREASED APPETITE [None]
  - DEHYDRATION [None]
  - DEPRESSED LEVEL OF CONSCIOUSNESS [None]
  - MALAISE [None]
  - OVERDOSE [None]
  - PNEUMONIA [None]
  - RENAL FAILURE [None]
  - SOMNOLENCE [None]
  - SPEECH DISORDER [None]
